FAERS Safety Report 6983381-4 (Version None)
Quarter: 2010Q3

REPORT INFORMATION
  Report Type: 
  Country: None (occurrence: None)
  Receive Date: 20100914
  Receipt Date: 20100906
  Transmission Date: 20110219
  Serious: Yes (Life-Threatening, Hospitalization, Other)
  Sender: FDA-Public Use
  Company Number: FR-BRISTOL-MYERS SQUIBB COMPANY-15273048

PATIENT
  Age: 77 Year
  Sex: Male

DRUGS (15)
  1. AXEPIM INJ 2 GM [Suspect]
     Route: 042
     Dates: start: 20100731, end: 20100806
  2. METFORMIN HCL [Suspect]
  3. AMIKIN [Suspect]
     Route: 042
     Dates: start: 20100731, end: 20100805
  4. RIMIFON [Suspect]
     Route: 048
     Dates: start: 20100604, end: 20100806
  5. PIRILENE [Suspect]
     Dosage: PIRILENE 500 MG TABLET
     Dates: start: 20100604, end: 20100806
  6. MYAMBUTOL [Suspect]
     Dosage: MYAMBUTOL 400MG TABLET
     Route: 048
     Dates: start: 20100604, end: 20100806
  7. RIFADIN [Suspect]
     Dosage: RIFADINE 300MG CAPSULE
     Route: 048
     Dates: start: 20100604, end: 20100806
  8. ACEBUTOLOL [Suspect]
  9. CRESTOR [Suspect]
  10. RAMIPRIL [Suspect]
  11. GLICLAZIDE [Suspect]
  12. KARDEGIC [Suspect]
  13. ALLOPURINOL [Suspect]
  14. IMIPENEM AND CILASTATIN [Suspect]
     Dates: start: 20100708, end: 20100725
  15. SOLU-MEDROL [Concomitant]
     Indication: GENERALISED ERYTHEMA
     Dates: start: 20100725

REACTIONS (5)
  - ALTERED STATE OF CONSCIOUSNESS [None]
  - DERMATITIS EXFOLIATIVE [None]
  - GRAND MAL CONVULSION [None]
  - PLEURAL EFFUSION [None]
  - RENAL FAILURE [None]
